FAERS Safety Report 5159197-0 (Version None)
Quarter: 2006Q4

REPORT INFORMATION
  Report Type: 
  Country: None (occurrence: None)
  Receive Date: 20061120
  Receipt Date: 20061114
  Transmission Date: 20070319
  Serious: Yes (Other)
  Sender: FDA-Public Use
  Company Number: 2006S1000224

PATIENT
  Age: 13 Day
  Sex: Female

DRUGS (7)
  1. NITRIC OXIDE [Suspect]
     Indication: LUNG DISORDER
     Dosage: 5 PPM; INH_GAS; INH; CONT
     Route: 055
     Dates: start: 20061025
  2. NITRIC OXIDE [Suspect]
     Indication: PROPHYLAXIS
     Dosage: 5 PPM; INH_GAS; INH; CONT
     Route: 055
     Dates: start: 20061025
  3. THEOPHYLLINE [Concomitant]
  4. BUDESONIDE [Concomitant]
  5. SALBUTAMOL (SALBUTAMOL) [Concomitant]
  6. VANCOMYCIN [Concomitant]
  7. NETILMICIN (NETILMICIN) [Concomitant]

REACTIONS (4)
  - DRUG INEFFECTIVE [None]
  - PATENT DUCTUS ARTERIOSUS [None]
  - SEPSIS NEONATAL [None]
  - STAPHYLOCOCCAL SEPSIS [None]
